FAERS Safety Report 8015328-6 (Version None)
Quarter: 2011Q4

REPORT INFORMATION
  Report Type: 
  Country: None (occurrence: None)
  Receive Date: 20111223
  Receipt Date: 20111213
  Transmission Date: 20120403
  Serious: Yes (Hospitalization)
  Sender: FDA-Public Use
  Company Number: DSU-2010-05309

PATIENT
  Age: 73 Year
  Sex: Female
  Weight: 92.9874 kg

DRUGS (5)
  1. LASIX [Concomitant]
  2. VALIUM [Suspect]
     Indication: PRODUCT USED FOR UNKNOWN INDICATION
     Dosage: 15 MG (15 MG, TID), PER ORAL
     Route: 048
     Dates: start: 20100803, end: 20100101
  3. WELCHOL [Suspect]
     Indication: DIARRHOEA
     Dosage: 3750 MG (1875 MG, BID), PER ORAL
     Route: 048
     Dates: start: 20100922, end: 20110801
  4. ASPIRIN [Concomitant]
  5. BENICAR [Suspect]
     Indication: HYPERTENSION
     Dosage: 20 MG (20 MG, QD), PER ORAL
     Route: 048
     Dates: start: 20100803, end: 20100804

REACTIONS (9)
  - DIZZINESS [None]
  - BLOOD GLUCOSE INCREASED [None]
  - ERUCTATION [None]
  - LOSS OF CONSCIOUSNESS [None]
  - ABDOMINAL PAIN UPPER [None]
  - NAUSEA [None]
  - HEADACHE [None]
  - DIARRHOEA [None]
  - BLOOD PRESSURE DECREASED [None]
